FAERS Safety Report 11278524 (Version 2)
Quarter: 2016Q1

REPORT INFORMATION
  Report Type: Spontaneous
  Country: US (occurrence: US)
  Receive Date: 20150717
  Receipt Date: 20160208
  Transmission Date: 20160525
  Serious: Yes (Death, Hospitalization, Other)
  Sender: FDA-Public Use
  Company Number: US-MERCK-1507USA007762

PATIENT
  Sex: Female
  Weight: 51.7 kg

DRUGS (2)
  1. JANUMET [Suspect]
     Active Substance: METFORMIN HYDROCHLORIDE\SITAGLIPTIN PHOSPHATE
     Indication: TYPE 2 DIABETES MELLITUS
     Dosage: 50/500 MG QD-BID
     Route: 048
     Dates: start: 20120208, end: 201210
  2. JANUVIA [Suspect]
     Active Substance: SITAGLIPTIN PHOSPHATE
     Indication: TYPE 2 DIABETES MELLITUS
     Dosage: 100 MG, QD
     Route: 048
     Dates: start: 20120515, end: 20140605

REACTIONS (17)
  - Anaemia [Unknown]
  - Death [Fatal]
  - Pancreatitis acute [Unknown]
  - Inappropriate schedule of drug administration [Unknown]
  - Hypertension [Unknown]
  - Adenocarcinoma pancreas [Unknown]
  - Metastases to liver [Unknown]
  - Sinusitis [Unknown]
  - Nodule [Unknown]
  - Neutropenia [Unknown]
  - Radiotherapy [Unknown]
  - Hepatic lesion [Unknown]
  - Bile duct obstruction [Unknown]
  - Pancreatitis [Unknown]
  - Cataract [Unknown]
  - Fat necrosis [Unknown]
  - Neuropathy peripheral [Unknown]

NARRATIVE: CASE EVENT DATE: 2012
